FAERS Safety Report 5244295-3 (Version None)
Quarter: 2007Q1

REPORT INFORMATION
  Report Type: 
  Country: None (occurrence: None)
  Receive Date: 20070216
  Receipt Date: 20070202
  Transmission Date: 20070707
  Serious: Yes (Death)
  Sender: FDA-Public Use
  Company Number: CERZ-11510

PATIENT
  Age: 5 Year
  Sex: Male
  Weight: 15 kg

DRUGS (1)
  1. CEREZYME [Suspect]
     Indication: GAUCHER'S DISEASE
     Dosage: 100 UNITS Q2WKS IV
     Route: 042
     Dates: start: 20030125, end: 20070122

REACTIONS (4)
  - CONDITION AGGRAVATED [None]
  - CONVULSION [None]
  - NEUROLOGICAL SYMPTOM [None]
  - RESPIRATORY FAILURE [None]
